FAERS Safety Report 12823022 (Version 2)
Quarter: 2016Q4

REPORT INFORMATION
  Report Type: Spontaneous
  Country: IT (occurrence: IT)
  Receive Date: 20161007
  Receipt Date: 20161128
  Transmission Date: 20170207
  Serious: Yes (Hospitalization, Other)
  Sender: FDA-Public Use
  Company Number: PHHY2016IT096406

PATIENT
  Age: 60 Year
  Sex: Female

DRUGS (1)
  1. GILENYA [Suspect]
     Active Substance: FINGOLIMOD HYDROCHLORIDE
     Indication: MULTIPLE SCLEROSIS
     Dosage: 0.5 MG, QD
     Route: 048
     Dates: start: 20120926, end: 20160623

REACTIONS (11)
  - Lymphopenia [Unknown]
  - Disturbance in attention [Recovering/Resolving]
  - Muscular weakness [Recovering/Resolving]
  - Neutrophil count decreased [Recovering/Resolving]
  - Hemiparesis [Recovering/Resolving]
  - Immune reconstitution inflammatory syndrome [Unknown]
  - Progressive multifocal leukoencephalopathy [Recovering/Resolving]
  - Movement disorder [Unknown]
  - Apraxia [Recovering/Resolving]
  - Cognitive disorder [Not Recovered/Not Resolved]
  - White blood cell count decreased [Recovering/Resolving]

NARRATIVE: CASE EVENT DATE: 201605
